FAERS Safety Report 23228129 (Version 1)
Quarter: 2023Q4

REPORT INFORMATION
  Report Type: Report from Study
  Country: EG (occurrence: EG)
  Receive Date: 20231125
  Receipt Date: 20231125
  Transmission Date: 20240110
  Serious: Yes (Disabling, Other)
  Sender: FDA-Public Use
  Company Number: EG-002147023-NVSC2023EG250081

PATIENT
  Sex: Female

DRUGS (1)
  1. GILENYA [Suspect]
     Active Substance: FINGOLIMOD HYDROCHLORIDE
     Indication: Multiple sclerosis
     Dosage: 1 DOSAGE FORM, (STOPPED 4 MONTHS AGO UPON REPORTER^S WORDS HE COULD NOT REMEMBER THE EXACT DATE)
     Route: 048
     Dates: start: 202204

REACTIONS (2)
  - Concomitant disease aggravated [Not Recovered/Not Resolved]
  - Product dispensing issue [Unknown]
